FAERS Safety Report 5134497-9 (Version None)
Quarter: 2006Q4

REPORT INFORMATION
  Report Type: 
  Country: None (occurrence: None)
  Receive Date: 20061023
  Receipt Date: 20061023
  Transmission Date: 20070319
  Serious: Yes (Other)
  Sender: FDA-Public Use
  Company Number: None

PATIENT
  Age: 44 Year
  Sex: Female
  Weight: 70.3075 kg

DRUGS (3)
  1. LEVAQUIN [Suspect]
     Indication: PNEUMONIA
     Dosage: 500MG IV QD
     Route: 042
     Dates: start: 20061012
  2. ZITHROMAX [Suspect]
     Indication: PNEUMONIA
     Dosage: 500MG IV QD
     Route: 042
     Dates: start: 20061012
  3. DIPHENHYDRAMINE ORAL [Concomitant]

REACTIONS (1)
  - RASH PRURITIC [None]
